FAERS Safety Report 9031336 (Version 1)
Quarter: 2013Q1

REPORT INFORMATION
  Report Type: Report from Study
  Country: US (occurrence: US)
  Receive Date: 20130124
  Receipt Date: 20130124
  Transmission Date: 20140127
  Serious: No
  Sender: FDA-Public Use
  Company Number: US-VERTEX PHARMACEUTICALS INC.-2013-001041

PATIENT
  Age: 52 Year
  Sex: Male

DRUGS (8)
  1. VX-950 (TELAPREVIR) [Suspect]
     Indication: HEPATITIS C
     Dosage: 750 MG, UNK
     Route: 048
  2. GABAPENTIN 1 A PHARMA [Concomitant]
     Dosage: 100 MG, UNK
  3. METFORMIN [Concomitant]
     Dosage: 1000 MG, UNK
  4. NIACIN [Concomitant]
     Dosage: 125 MG, UNK
  5. HYDROCO/APAP [Concomitant]
     Dosage: 10-300 MG
  6. FISH OIL [Concomitant]
  7. MULTIVITAMIN                       /00097801/ [Concomitant]
  8. ASPIRIN ADLT [Concomitant]
     Dosage: 81 MG, UNK

REACTIONS (1)
  - Rash papular [Unknown]
